FAERS Safety Report 6044859-3 (Version None)
Quarter: 2009Q1

REPORT INFORMATION
  Report Type: 
  Country: None (occurrence: None)
  Receive Date: 20090121
  Receipt Date: 20090113
  Transmission Date: 20090719
  Serious: Yes (Life-Threatening, Hospitalization, Other)
  Sender: FDA-Public Use
  Company Number: FR-BAXTER-801#1#2003_20845001

PATIENT
  Age: 12 Year
  Sex: Male
  Weight: 39 kg

DRUGS (5)
  1. ENDOXAN BAXTER [Suspect]
     Indication: SYSTEMIC LUPUS ERYTHEMATOSUS
     Route: 042
     Dates: start: 20021101, end: 20021102
  2. SOLUPRED [Suspect]
     Indication: DRUG USE FOR UNKNOWN INDICATION
     Route: 048
     Dates: start: 20020726, end: 20021102
  3. OROCAL [Suspect]
     Indication: DRUG USE FOR UNKNOWN INDICATION
     Route: 048
     Dates: start: 20020726, end: 20021102
  4. CORTICOSTEROIDS [Concomitant]
     Indication: RENAL FAILURE
  5. PLAQUENIL [Concomitant]

REACTIONS (11)
  - ANAPHYLACTIC REACTION [None]
  - HAEMOPTYSIS [None]
  - LEFT VENTRICULAR HYPERTROPHY [None]
  - NEUTROPENIA [None]
  - OXYGEN SATURATION DECREASED [None]
  - PARAESTHESIA [None]
  - PULMONARY HYPERTENSION [None]
  - PULMONARY OEDEMA [None]
  - RESPIRATORY DISTRESS [None]
  - RESPIRATORY FAILURE [None]
  - TACHYCARDIA [None]
